FAERS Safety Report 6815684-8 (Version None)
Quarter: 2010Q3

REPORT INFORMATION
  Report Type: 
  Country: None (occurrence: None)
  Receive Date: 20100702
  Receipt Date: 20100624
  Transmission Date: 20110219
  Serious: Yes (Hospitalization, Other)
  Sender: FDA-Public Use
  Company Number: US-AMGEN-KDL420920

PATIENT
  Sex: Female
  Weight: 36.8 kg

DRUGS (7)
  1. PROCRIT [Suspect]
     Indication: PRODUCT USED FOR UNKNOWN INDICATION
  2. SYNTHROID [Concomitant]
  3. PROMETRIUM [Concomitant]
  4. ESTRADIOL [Concomitant]
  5. SODIUM BICARBONATE [Concomitant]
  6. OXYCODONE HCL [Concomitant]
     Route: 048
  7. TYLENOL [Concomitant]

REACTIONS (7)
  - ARTHRALGIA [None]
  - ATRIAL FIBRILLATION [None]
  - BILE DUCT STONE [None]
  - GALLBLADDER OPERATION [None]
  - HEADACHE [None]
  - MYALGIA [None]
  - WEIGHT DECREASED [None]
